FAERS Safety Report 4955897-3 (Version None)
Quarter: 2006Q1

REPORT INFORMATION
  Report Type: 
  Country: None (occurrence: None)
  Receive Date: 20060327
  Receipt Date: 20060327
  Transmission Date: 20060701
  Serious: Yes (Hospitalization, Other)
  Sender: FDA-Public Use
  Company Number: None

PATIENT
  Sex: Male
  Weight: 92 kg

DRUGS (3)
  1. CARBOPLATIN [Suspect]
     Indication: LUNG SQUAMOUS CELL CARCINOMA STAGE UNSPECIFIED
     Dosage: 720 MG
     Dates: start: 20060227, end: 20060227
  2. CETUXIMAB (ERBITUX; MOAB:C225 CHIMERIC MONOCLONAL ANTIBODY)(IMCLONE/B [Suspect]
     Dosage: 1040 MG
     Dates: start: 20060227, end: 20060306
  3. PEMETREXED (ALIMTA; LY231514) [Suspect]
     Dosage: 1040 MG
     Dates: start: 20060227, end: 20060227

REACTIONS (4)
  - HYPOTENSION [None]
  - MENTAL STATUS CHANGES [None]
  - PANCYTOPENIA [None]
  - SEPTIC SHOCK [None]
